FAERS Safety Report 19514650 (Version 5)
Quarter: 2021Q3

REPORT INFORMATION
  Report Type: Spontaneous
  Country: JP (occurrence: JP)
  Receive Date: 20210709
  Receipt Date: 20210818
  Transmission Date: 20211014
  Serious: Yes (Other)
  Sender: FDA-Public Use
  Company Number: JP-JNJFOC-20210712424

PATIENT

DRUGS (1)
  1. SIMPONI [Suspect]
     Active Substance: GOLIMUMAB
     Indication: COLITIS ULCERATIVE
     Dosage: 50.00 MG / 0.50 ML
     Route: 058

REACTIONS (9)
  - Syringe issue [Unknown]
  - Injury associated with device [Unknown]
  - Device issue [Unknown]
  - Underdose [Unknown]
  - Drug delivery system malfunction [Unknown]
  - Accidental exposure to product [Unknown]
  - Device infusion issue [Unknown]
  - Needle issue [Unknown]
  - Administration site infection [Unknown]

NARRATIVE: CASE EVENT DATE: 20210702
